FAERS Safety Report 6822377-X (Version None)
Quarter: 2010Q3

REPORT INFORMATION
  Report Type: 
  Country: None (occurrence: None)
  Receive Date: 20100708
  Receipt Date: 20100625
  Transmission Date: 20110219
  Serious: Yes (Hospitalization, Other)
  Sender: FDA-Public Use
  Company Number: PHHY2010BR41948

PATIENT
  Age: 70 Year
  Sex: Male

DRUGS (3)
  1. EXFORGE [Suspect]
     Indication: HYPERTENSION
     Dosage: 1 DF, QD
     Route: 048
  2. BROMAZEPAM [Concomitant]
     Indication: DEPRESSION
     Dosage: 1 OR 2 TABLETS DAILY
     Route: 048
  3. SELOZOK [Concomitant]
     Indication: HEART RATE IRREGULAR

REACTIONS (4)
  - BLOOD PRESSURE INADEQUATELY CONTROLLED [None]
  - CYST REMOVAL [None]
  - OEDEMA PERIPHERAL [None]
  - PANIC REACTION [None]
